FAERS Safety Report 7688330-1 (Version None)
Quarter: 2011Q3

REPORT INFORMATION
  Report Type: 
  Country: None (occurrence: None)
  Receive Date: 20110817
  Receipt Date: 20110811
  Transmission Date: 20111222
  Serious: Yes (Other)
  Sender: FDA-Public Use
  Company Number: US-PFIZER INC-2011185465

PATIENT
  Sex: Female
  Weight: 54.422 kg

DRUGS (15)
  1. WARFARIN SODIUM [Concomitant]
     Dosage: 2 MG ONE DAY, 3 MG OTHER DAY, DAILY
     Route: 048
  2. VITAMIN D [Concomitant]
     Indication: OSTEOPOROSIS
     Dosage: 600 MG, UNK
     Route: 048
  3. FISH OIL [Concomitant]
     Dosage: UNK
  4. NORVASC [Concomitant]
     Indication: CARDIAC DISORDER
     Dosage: 5 MG, 1X/DAY
  5. REVATIO [Suspect]
     Indication: PULMONARY HYPERTENSION
     Dosage: 1/2 OF 20MG DAILY FOR A WEEK THEN 1/4 OF 20MG
     Route: 048
     Dates: start: 19960101
  6. ADVAIR DISKUS 100/50 [Concomitant]
     Indication: ASTHMA
     Dosage: 250/50 UG, 2X/DAY
     Route: 055
  7. CALCIUM [Concomitant]
     Indication: OSTEOPOROSIS
     Dosage: UNK
  8. HYZAAR [Concomitant]
     Dosage: 100/25 MG, DAILY
     Route: 048
  9. LASIX [Concomitant]
     Indication: FLUID RETENTION
     Dosage: 40 MG, 1X/DAY
     Route: 048
  10. DIGOXIN [Concomitant]
     Indication: ATRIAL FIBRILLATION
     Dosage: 0.125 MG, 1X/DAY
     Route: 048
  11. PREVACID [Concomitant]
     Indication: GASTROOESOPHAGEAL REFLUX DISEASE
     Dosage: 30 MG, 2X/DAY
     Route: 048
  12. ZANTAC [Concomitant]
     Indication: GASTROOESOPHAGEAL REFLUX DISEASE
     Dosage: 300 MG, DAILY
     Route: 048
  13. SPIRIVA [Concomitant]
     Indication: ASTHMA
     Dosage: 18 UG, 1X/DAY
     Route: 055
  14. XOPENEX [Concomitant]
     Indication: ASTHMA
     Dosage: UNK
  15. FOSAMAX [Concomitant]
     Indication: OSTEOPOROSIS
     Dosage: 70 MG, WEEKLY
     Route: 048

REACTIONS (3)
  - BLOOD PRESSURE DECREASED [None]
  - SOMNOLENCE [None]
  - ACTIVITIES OF DAILY LIVING IMPAIRED [None]
